FAERS Safety Report 18217302 (Version 1)
Quarter: 2020Q3

REPORT INFORMATION
  Report Type: Spontaneous
  Country: US (occurrence: US)
  Receive Date: 20200831
  Receipt Date: 20200831
  Transmission Date: 20201103
  Serious: No
  Sender: FDA-Public Use
  Company Number: None

PATIENT
  Age: 90 Year
  Sex: Male
  Weight: 82 kg

DRUGS (1)
  1. DORZOLAMIDE/TIMOLOL (DORZOLAMIDE HCL 22.3MG/TIMOLOL MALEATE 6.8MG SOLN [Suspect]
     Active Substance: DORZOLAMIDE\TIMOLOL
     Indication: GLAUCOMA
     Dates: start: 20200219, end: 20200624

REACTIONS (8)
  - Swollen tongue [None]
  - Angioedema [None]
  - Urticaria [None]
  - Pruritus [None]
  - Bronchospasm [None]
  - Pharyngeal swelling [None]
  - Hypersensitivity [None]
  - Lip swelling [None]

NARRATIVE: CASE EVENT DATE: 20200715
